FAERS Safety Report 12631840 (Version 2)
Quarter: 2016Q3

REPORT INFORMATION
  Report Type: Spontaneous
  Country: US (occurrence: US)
  Receive Date: 20160808
  Receipt Date: 20160808
  Transmission Date: 20161109
  Serious: No
  Sender: FDA-Public Use
  Company Number: US-BEH-2016061214

PATIENT
  Sex: Female
  Weight: 53 kg

DRUGS (24)
  1. ACETAMINOPHEN. [Concomitant]
     Active Substance: ACETAMINOPHEN
  2. FLUCONAZOLE. [Concomitant]
     Active Substance: FLUCONAZOLE
  3. MORPHINE [Concomitant]
     Active Substance: MORPHINE
  4. SINGULAIR [Concomitant]
     Active Substance: MONTELUKAST SODIUM
  5. BENADRYL [Concomitant]
     Active Substance: DIPHENHYDRAMINE HYDROCHLORIDE
  6. OXYCODONE [Concomitant]
     Active Substance: OXYCODONE
  7. HIZENTRA [Suspect]
     Active Substance: HUMAN IMMUNOGLOBULIN G
     Route: 058
  8. EPIPEN [Concomitant]
     Active Substance: EPINEPHRINE
  9. RESTASIS [Concomitant]
     Active Substance: CYCLOSPORINE
  10. NEURONTIN [Concomitant]
     Active Substance: GABAPENTIN
  11. XOLAIR [Concomitant]
     Active Substance: OMALIZUMAB
  12. HYOSCYAMINE. [Concomitant]
     Active Substance: HYOSCYAMINE
  13. ALPRAZOLAM. [Concomitant]
     Active Substance: ALPRAZOLAM
  14. DIPHENHYDRAMINE. [Concomitant]
     Active Substance: DIPHENHYDRAMINE
  15. AMOXICILLIN. [Concomitant]
     Active Substance: AMOXICILLIN
  16. HIZENTRA [Suspect]
     Active Substance: HUMAN IMMUNOGLOBULIN G
     Route: 058
  17. LIDOCAINE. [Concomitant]
     Active Substance: LIDOCAINE
  18. NEXIUM [Concomitant]
     Active Substance: ESOMEPRAZOLE MAGNESIUM
  19. HIZENTRA [Suspect]
     Active Substance: HUMAN IMMUNOGLOBULIN G
     Indication: IMMUNODEFICIENCY COMMON VARIABLE
     Route: 058
     Dates: start: 20100616
  20. LASIX [Concomitant]
     Active Substance: FUROSEMIDE
  21. FROVA [Concomitant]
     Active Substance: FROVATRIPTAN SUCCINATE
  22. ASPIRIN. [Concomitant]
     Active Substance: ASPIRIN
  23. LACTULOSE. [Concomitant]
     Active Substance: LACTULOSE
  24. ADVAIR HFA [Concomitant]
     Active Substance: FLUTICASONE PROPIONATE\SALMETEROL XINAFOATE

REACTIONS (1)
  - Headache [Unknown]
